FAERS Safety Report 14972013 (Version 1)
Quarter: 2018Q2

REPORT INFORMATION
  Report Type: Spontaneous
  Country: CZ (occurrence: CZ)
  Receive Date: 20180605
  Receipt Date: 20180605
  Transmission Date: 20180711
  Serious: Yes (Other)
  Sender: FDA-Public Use
  Company Number: CZ-ROCHE-2134109

PATIENT
  Sex: Female

DRUGS (3)
  1. DOCETAXEL. [Suspect]
     Active Substance: DOCETAXEL
     Indication: INVASIVE DUCTAL BREAST CARCINOMA
     Dosage: DOSE WAS INCREASED TO 100 MG/M2
     Route: 065
     Dates: start: 201412, end: 201506
  2. PERTUZUMAB. [Suspect]
     Active Substance: PERTUZUMAB
     Indication: INVASIVE DUCTAL BREAST CARCINOMA
     Dosage: ALSO RECEIVED AT A DOSE OF 420 MG / M2 AS WELL AS A 30-MINUTE INCISION
     Route: 065
     Dates: start: 201412, end: 201506
  3. TRASTUZUMAB. [Suspect]
     Active Substance: TRASTUZUMAB
     Indication: INVASIVE DUCTAL BREAST CARCINOMA
     Dosage: 8MG/KG IN A 90-MINUTE INFUSION AND 6 MG/KG IN A 30-MINUTE INFUSION
     Route: 065
     Dates: start: 201412, end: 201506

REACTIONS (1)
  - Polyneuropathy [Unknown]
